FAERS Safety Report 12294798 (Version 1)
Quarter: 2016Q2

REPORT INFORMATION
  Report Type: Spontaneous
  Country: US (occurrence: None)
  Receive Date: 20160421
  Receipt Date: 20160421
  Transmission Date: 20160815
  Serious: Yes (Other)
  Sender: FDA-Public Use
  Company Number: None

PATIENT
  Age: 76 Year
  Sex: Male
  Weight: 86.18 kg

DRUGS (5)
  1. AREDS2 [Concomitant]
  2. PACEMAKER [Concomitant]
  3. PRADAXA [Concomitant]
     Active Substance: DABIGATRAN ETEXILATE MESYLATE
  4. BLOOD PRESSURE MEDS [Concomitant]
  5. EYLEA [Suspect]
     Active Substance: AFLIBERCEPT

REACTIONS (2)
  - Sinus disorder [None]
  - Haemorrhage [None]

NARRATIVE: CASE EVENT DATE: 20160319
